FAERS Safety Report 5337716-9 (Version None)
Quarter: 2007Q2

REPORT INFORMATION
  Report Type: 
  Country: None (occurrence: None)
  Receive Date: 20070315
  Receipt Date: 20060403
  Transmission Date: 20071010
  Serious: Yes (Other)
  Sender: FDA-Public Use
  Company Number: PHEH2006US01302

PATIENT
  Age: 45 Year
  Sex: Female
  Weight: 117.9 kg

DRUGS (11)
  1. TRILEPTAL [Suspect]
     Indication: BIPOLAR I DISORDER
     Dosage: 900 MG, QD
     Dates: start: 20040101
  2. DIFLUCAN [Suspect]
     Indication: FUNGAL INFECTION
     Dosage: 150 MG, ONCE/SINGLE, ORAL
     Route: 048
     Dates: start: 20060101, end: 20060101
  3. HYDROXYZINE [Concomitant]
  4. CLONAZEPAM [Concomitant]
  5. PROVIGIL [Concomitant]
  6. RISPERIDONE [Concomitant]
  7. CITALOPRAM HYDROBROMIDE [Concomitant]
  8. ZIPRASIDONE HCL [Concomitant]
  9. INSULIN (METFORMIN) [Concomitant]
  10. DURAGESIC-100 [Concomitant]
  11. HYDROCODONE (HYDROCODONE) [Concomitant]

REACTIONS (4)
  - FUNGAL INFECTION [None]
  - PARAESTHESIA [None]
  - PSYCHOTIC DISORDER [None]
  - SOMATIC DELUSION [None]
